FAERS Safety Report 12526112 (Version 3)
Quarter: 2016Q3

REPORT INFORMATION
  Report Type: Spontaneous
  Country: US (occurrence: US)
  Receive Date: 20160705
  Receipt Date: 20160804
  Transmission Date: 20161109
  Serious: No
  Sender: FDA-Public Use
  Company Number: US-PFIZER INC-2016293530

PATIENT
  Age: 71 Year
  Sex: Female

DRUGS (2)
  1. IBRANCE [Suspect]
     Active Substance: PALBOCICLIB
     Dosage: 125 MG, CYCLIC (125 MG DAILY FOR 21 OUT OF 28 DAY CYCLE)
     Dates: start: 20151110
  2. LETROZOLE. [Suspect]
     Active Substance: LETROZOLE
     Dosage: UNK

REACTIONS (5)
  - Tumour marker increased [Unknown]
  - Abdominal pain upper [Unknown]
  - Pruritus [Unknown]
  - Constipation [Unknown]
  - Fatigue [Unknown]
